FAERS Safety Report 7583704-1 (Version None)
Quarter: 2011Q2

REPORT INFORMATION
  Report Type: 
  Country: None (occurrence: None)
  Receive Date: 20110630
  Receipt Date: 20110622
  Transmission Date: 20111010
  Serious: Yes (Hospitalization)
  Sender: FDA-Public Use
  Company Number: B0727765A

PATIENT
  Sex: Male

DRUGS (4)
  1. PANTOPRAZOLE [Suspect]
     Route: 048
     Dates: start: 20110331
  2. WELLVONE [Suspect]
     Dosage: 750MG TWICE PER DAY
     Route: 048
     Dates: start: 20110404, end: 20110406
  3. CLINDAMYCIN HCL [Suspect]
     Route: 048
     Dates: start: 20110323, end: 20110412
  4. BACTRIM DS [Suspect]
     Route: 048
     Dates: start: 20110314, end: 20110404

REACTIONS (3)
  - FACE OEDEMA [None]
  - RASH MACULO-PAPULAR [None]
  - EOSINOPHIL COUNT INCREASED [None]
